FAERS Safety Report 6802956-6 (Version None)
Quarter: 2010Q2

REPORT INFORMATION
  Report Type: 
  Country: None (occurrence: None)
  Receive Date: 20100628
  Receipt Date: 20100618
  Transmission Date: 20101027
  Serious: No
  Sender: FDA-Public Use
  Company Number: US-JNJFOC-20100606140

PATIENT
  Sex: Female
  Weight: 71.67 kg

DRUGS (16)
  1. SANDOZ FENTANYL TRANSDERMAL SYSTEM [Suspect]
     Indication: FIBROMYALGIA
     Route: 062
     Dates: start: 20100301
  2. CYMBALTA [Concomitant]
     Indication: FIBROMYALGIA
     Route: 048
  3. HUMALOG [Concomitant]
     Indication: DIABETES MELLITUS
     Route: 058
  4. PROGRAFT [Concomitant]
     Indication: IMMUNOSUPPRESSANT DRUG THERAPY
     Dosage: EVERY NIGHT
     Route: 048
  5. PROGRAFT [Concomitant]
     Dosage: EVERY MORNING
     Route: 048
  6. MYFORTIC [Concomitant]
     Indication: IMMUNOSUPPRESSANT DRUG THERAPY
     Route: 048
  7. MYFORTIC [Concomitant]
     Route: 048
  8. ASPIRIN [Concomitant]
     Indication: ANTICOAGULANT THERAPY
     Route: 048
  9. COREG [Concomitant]
     Indication: CARDIAC DISORDER
     Route: 048
  10. SYNTHROID [Concomitant]
     Indication: HYPOTHYROIDISM
     Route: 048
  11. REMERON [Concomitant]
     Indication: ANXIETY
     Route: 048
  12. LASIX [Concomitant]
     Indication: DIURETIC THERAPY
     Route: 048
  13. RESTORIL [Concomitant]
     Indication: SLEEP DISORDER
     Route: 048
  14. DEXILANT [Concomitant]
     Indication: GASTROOESOPHAGEAL REFLUX DISEASE
     Route: 048
  15. ATIVAN [Concomitant]
     Indication: ANXIETY
     Route: 048
  16. BACTRIN [Concomitant]
     Indication: RENAL DISORDER

REACTIONS (2)
  - DRUG ADMINISTERED AT INAPPROPRIATE SITE [None]
  - WRONG TECHNIQUE IN DRUG USAGE PROCESS [None]
